FAERS Safety Report 8881179 (Version 1)
Quarter: 2012Q4

REPORT INFORMATION
  Report Type: 
  Country: DE (occurrence: DE)
  Receive Date: 20121031
  Receipt Date: 20121031
  Transmission Date: 20130627
  Serious: Yes (Other)
  Sender: FDA-Public Use
  Company Number: PHHY2012DE097602

PATIENT
  Age: 9 Year
  Sex: Male

DRUGS (1)
  1. ZOMETA [Suspect]
     Dosage: 4 mg/5ml,every 3-4 weeks
     Route: 042

REACTIONS (2)
  - Sepsis [Unknown]
  - Myocardial infarction [Unknown]
